FAERS Safety Report 23672934 (Version 3)
Quarter: 2024Q2

REPORT INFORMATION
  Report Type: Spontaneous
  Country: RU (occurrence: RU)
  Receive Date: 20240326
  Receipt Date: 20240409
  Transmission Date: 20240716
  Serious: Yes (Life-Threatening, Hospitalization)
  Sender: FDA-Public Use
  Company Number: RU-AstraZeneca-2024A071256

PATIENT

DRUGS (1)
  1. SYNAGIS [Suspect]
     Active Substance: PALIVIZUMAB
     Indication: Product used for unknown indication
     Dosage: UNKNOWN
     Route: 030

REACTIONS (3)
  - Respiratory syncytial virus infection [Unknown]
  - Drug ineffective [Unknown]
  - Product preparation error [Unknown]
